FAERS Safety Report 9251035 (Version 1)
Quarter: 2013Q1

REPORT INFORMATION
  Report Type: Spontaneous
  Country: US (occurrence: None)
  Receive Date: 20130305
  Receipt Date: 20130305
  Transmission Date: 20140127
  Serious: Yes (Other)
  Sender: FDA-Public Use
  Company Number: 163-21880-12090079

PATIENT
  Age: 76 Year
  Sex: Male
  Weight: 90.26 kg

DRUGS (9)
  1. REVLIMID [Suspect]
     Indication: PLASMA CELL MYELOMA
     Dosage: 25 MG, 1 IN 1 D
     Route: 048
     Dates: start: 201109
  2. ALLOPURINOL [Concomitant]
  3. ASPIRIN (ACETYLSALICYCYLIC ACID) [Concomitant]
  4. CANDESARTAN CILEXETIL (CANDESARTAN CILEXETIL) [Concomitant]
  5. METFORMIN (METFORMIN) [Concomitant]
  6. OMEGA 3 (FISH OIL) [Concomitant]
  7. PROCHLORPERAZINE (PROCHLORPERAZINE) [Concomitant]
  8. VITAMIN B6 (PYRIDOXINE HYDROCHLORIDE) [Concomitant]
  9. VITAMIN E (TOCOPHEROL) [Concomitant]

REACTIONS (1)
  - Pancytopenia [None]
